FAERS Safety Report 8646294 (Version 2)
Quarter: 2012Q4

REPORT INFORMATION
  Report Type: 
  Country: US (occurrence: US)
  Receive Date: 20120702
  Receipt Date: 20120910
  Transmission Date: 20130627
  Serious: Yes (Death)
  Sender: FDA-Public Use
  Company Number: US-ELI_LILLY_AND_COMPANY-US201206008281

PATIENT
  Sex: Female
  Weight: 38 kg

DRUGS (1)
  1. ADCIRCA [Suspect]
     Indication: PULMONARY HYPERTENSION
     Dosage: UNK, unknown
     Route: 065
     Dates: start: 20111110

REACTIONS (1)
  - Cardio-respiratory arrest [Fatal]
